FAERS Safety Report 11643223 (Version 2)
Quarter: 2015Q4

REPORT INFORMATION
  Report Type: Spontaneous
  Country: US (occurrence: US)
  Receive Date: 20151020
  Receipt Date: 20151104
  Transmission Date: 20160304
  Serious: No
  Sender: FDA-Public Use
  Company Number: US-BAYER-2015-446975

PATIENT
  Age: 70 Year
  Sex: Male
  Weight: 88.44 kg

DRUGS (1)
  1. MIRALAX [Suspect]
     Active Substance: POLYETHYLENE GLYCOL 3350
     Indication: STOMA OBSTRUCTION
     Dosage: 1 TEASPOON, QD
     Route: 048
     Dates: start: 2007

REACTIONS (3)
  - Off label use [None]
  - Product use issue [None]
  - Product quality issue [None]

NARRATIVE: CASE EVENT DATE: 2007
